FAERS Safety Report 16274573 (Version 1)
Quarter: 2019Q2

REPORT INFORMATION
  Report Type: Spontaneous
  Country: TW (occurrence: TW)
  Receive Date: 20190504
  Receipt Date: 20190504
  Transmission Date: 20190711
  Serious: Yes (Hospitalization)
  Sender: FDA-Public Use
  Company Number: PHHY2019TW096820

PATIENT
  Age: 21 Year
  Sex: Female

DRUGS (2)
  1. DROSPIRENONE [Concomitant]
     Active Substance: DROSPIRENONE
     Indication: POLYCYSTIC OVARIES
     Dosage: 3 MG, QD
     Route: 065
  2. METFORMIN [Suspect]
     Active Substance: METFORMIN HYDROCHLORIDE
     Indication: POLYCYSTIC OVARIES
     Dosage: 250 MG, QD
     Route: 065

REACTIONS (7)
  - Delusion of reference [Recovering/Resolving]
  - Aggression [Recovering/Resolving]
  - Abnormal behaviour [Recovering/Resolving]
  - Psychotic disorder [Recovering/Resolving]
  - Product use in unapproved indication [Unknown]
  - Insomnia [Recovering/Resolving]
  - Persecutory delusion [Recovering/Resolving]
